FAERS Safety Report 16449137 (Version 1)
Quarter: 2019Q2

REPORT INFORMATION
  Report Type: Spontaneous
  Country: US (occurrence: US)
  Receive Date: 20190619
  Receipt Date: 20190619
  Transmission Date: 20190711
  Serious: Yes (Other)
  Sender: FDA-Public Use
  Company Number: US-MALLINCKRODT-T201904353

PATIENT
  Sex: Female
  Weight: 61 kg

DRUGS (3)
  1. HYDROCODONE/ACETAMINOPHEN [Suspect]
     Active Substance: ACETAMINOPHEN\HYDROCODONE
     Indication: OSTEOARTHRITIS
     Dosage: 1 DF, TID
     Route: 065
  2. HYDROCODONE/ACETAMINOPHEN [Suspect]
     Active Substance: ACETAMINOPHEN\HYDROCODONE
     Dosage: 1 DF, TID
     Route: 065
  3. HYDROCODONE/ACETAMINOPHEN [Suspect]
     Active Substance: ACETAMINOPHEN\HYDROCODONE
     Dosage: HALF A TABLET
     Route: 065

REACTIONS (11)
  - Tension headache [Unknown]
  - Drug hypersensitivity [Unknown]
  - Product taste abnormal [Unknown]
  - Anxiety [Unknown]
  - Product quality issue [Unknown]
  - Fall [Unknown]
  - Underdose [Unknown]
  - Bruxism [Unknown]
  - Immobile [Unknown]
  - Hypoaesthesia [Unknown]
  - Body temperature increased [Unknown]

NARRATIVE: CASE EVENT DATE: 2018
